FAERS Safety Report 10733343 (Version 1)
Quarter: 2015Q1

REPORT INFORMATION
  Report Type: Spontaneous
  Country: JP (occurrence: JP)
  Receive Date: 20150123
  Receipt Date: 20150123
  Transmission Date: 20150721
  Serious: Yes (Death, Hospitalization)
  Sender: FDA-Public Use
  Company Number: PHHY2015JP008787

PATIENT
  Age: 90 Year
  Sex: Female

DRUGS (5)
  1. RIVASTACH [Suspect]
     Active Substance: RIVASTIGMINE
     Dosage: 4.6 MG, QD(9MG PER 24 HOUR)
     Route: 062
  2. RIVASTACH [Suspect]
     Active Substance: RIVASTIGMINE
     Indication: DEMENTIA ALZHEIMER^S TYPE
     Dosage: 1.9 MG, QD (4.5MG PER 24 HOUR)
     Route: 062
  3. RIVASTACH [Suspect]
     Active Substance: RIVASTIGMINE
     Dosage: 6.9 MG, QD (13.5MG PER 24 HOUR)
     Route: 062
     Dates: end: 20141001
  4. RIVASTACH [Suspect]
     Active Substance: RIVASTIGMINE
     Dosage: 6.9 MG, QD (13.5MG PER 24 HOUR)
     Route: 062
  5. RIVASTACH [Suspect]
     Active Substance: RIVASTIGMINE
     Dosage: 9.5 MG, QD (18MG PER 24 HOUR)
     Route: 062

REACTIONS (10)
  - Feeling abnormal [Unknown]
  - Speech disorder [Recovering/Resolving]
  - Death [Fatal]
  - Hypophagia [Recovered/Resolved]
  - Pancreatic carcinoma [Unknown]
  - Weight increased [Recovered/Resolved]
  - Pyrexia [Unknown]
  - Diabetes mellitus [Unknown]
  - Metastases to liver [Unknown]
  - Somnolence [Unknown]

NARRATIVE: CASE EVENT DATE: 201309
